FAERS Safety Report 12885955 (Version 1)
Quarter: 2016Q4

REPORT INFORMATION
  Report Type: Spontaneous
  Country: US (occurrence: US)
  Receive Date: 20161026
  Receipt Date: 20161026
  Transmission Date: 20170207
  Serious: Yes (Hospitalization)
  Sender: FDA-Public Use
  Company Number: None

PATIENT
  Age: 86 Year
  Sex: Male
  Weight: 73.2 kg

DRUGS (10)
  1. ZYLOPRIM [Concomitant]
     Active Substance: ALLOPURINOL
  2. KLOR-CON [Suspect]
     Active Substance: POTASSIUM CHLORIDE
     Indication: NUTRITIONAL SUPPLEMENTATION
     Route: 048
  3. APHAGAN [Concomitant]
  4. PACERONE [Concomitant]
     Active Substance: AMIODARONE HYDROCHLORIDE
  5. ECOTRIN [Concomitant]
     Active Substance: ASPIRIN
  6. NORVASC [Concomitant]
     Active Substance: AMLODIPINE BESYLATE
  7. LUMIGAN [Concomitant]
     Active Substance: BIMATOPROST
  8. APAP [Concomitant]
     Active Substance: ACETAMINOPHEN
  9. ASCORBIC ACID. [Concomitant]
     Active Substance: ASCORBIC ACID
  10. LIPITOR [Concomitant]
     Active Substance: ATORVASTATIN CALCIUM

REACTIONS (4)
  - Pneumonia [None]
  - Hyperkalaemia [None]
  - Sepsis [None]
  - Acute kidney injury [None]

NARRATIVE: CASE EVENT DATE: 20151219
